FAERS Safety Report 7023665-7 (Version None)
Quarter: 2010Q3

REPORT INFORMATION
  Report Type: 
  Country: None (occurrence: None)
  Receive Date: 20100929
  Receipt Date: 20100929
  Transmission Date: 20110219
  Serious: Yes (Hospitalization)
  Sender: FDA-Public Use
  Company Number: None

PATIENT
  Sex: Female
  Weight: 62 kg

DRUGS (3)
  1. MEMANTINE HYDROCHLORIDE [Suspect]
     Dosage: 1840 MG
  2. CARBOPLATIN [Concomitant]
  3. TAXOL [Concomitant]

REACTIONS (3)
  - IMMOBILE [None]
  - PRESYNCOPE [None]
  - THROMBOCYTOPENIA [None]
